FAERS Safety Report 4867597-9 (Version None)
Quarter: 2005Q4

REPORT INFORMATION
  Report Type: 
  Country: None (occurrence: None)
  Receive Date: 20051223
  Receipt Date: 20051223
  Transmission Date: 20060501
  Serious: Yes (Other)
  Sender: FDA-Public Use
  Company Number: None

PATIENT
  Sex: Male
  Weight: 92.9874 kg

DRUGS (9)
  1. LOSARTAN POTASSIUM [Suspect]
     Indication: HYPERTENSION
     Dosage: 100 MG Q DAY PO
     Route: 048
     Dates: start: 20050628, end: 20050728
  2. ASPIRIN [Concomitant]
  3. ATENOLOL [Concomitant]
  4. CYCLOBENZAPRINE HCL [Concomitant]
  5. DPH [Concomitant]
  6. FINASTERIDE [Concomitant]
  7. GLIPIZIDE [Concomitant]
  8. RANITIDINE [Concomitant]
  9. TERAZOSIN [Concomitant]

REACTIONS (2)
  - ARTHRITIS [None]
  - CONFUSIONAL STATE [None]
